FAERS Safety Report 5047987-4 (Version None)
Quarter: 2006Q3

REPORT INFORMATION
  Report Type: 
  Country: None (occurrence: None)
  Receive Date: 20060710
  Receipt Date: 20060710
  Transmission Date: 20061208
  Serious: Yes (Disabling, Other)
  Sender: FDA-Public Use
  Company Number: None

PATIENT
  Age: 59 Year
  Sex: Female
  Weight: 52.6173 kg

DRUGS (1)
  1. AMITRIPTYLINE HYDROCHLORIDE 25MG YELLOW TAB [Suspect]
     Indication: DEPRESSION
     Dosage: 75MG X1  PO
     Route: 048
     Dates: start: 20060606, end: 20060706

REACTIONS (8)
  - ANXIETY [None]
  - ASTHENIA [None]
  - DEPRESSION [None]
  - FATIGUE [None]
  - MALAISE [None]
  - NERVOUSNESS [None]
  - PANIC ATTACK [None]
  - POOR QUALITY DRUG ADMINISTERED [None]
